FAERS Safety Report 12995057 (Version 2)
Quarter: 2017Q3

REPORT INFORMATION
  Report Type: Spontaneous
  Country: US (occurrence: US)
  Receive Date: 20161202
  Receipt Date: 20170928
  Transmission Date: 20171127
  Serious: Yes (Other)
  Sender: FDA-Public Use
  Company Number: US-TAKEDA-2016TUS021632

PATIENT
  Age: 15 Year
  Sex: Female
  Weight: 55.01 kg

DRUGS (9)
  1. METRELEPTIN [Suspect]
     Active Substance: METRELEPTIN
     Indication: NON-ALCOHOLIC STEATOHEPATITIS
     Dosage: 2.5 MG, QD
     Route: 058
     Dates: start: 20160830, end: 20160831
  2. FENOFIBRATE. [Suspect]
     Active Substance: FENOFIBRATE
     Indication: PRODUCT USED FOR UNKNOWN INDICATION
     Dosage: 160 MG, QD
     Route: 065
     Dates: start: 20160902, end: 20161028
  3. NOVOLOG [Concomitant]
     Active Substance: INSULIN ASPART
     Dosage: UNK
     Dates: start: 20160915
  4. METRELEPTIN [Suspect]
     Active Substance: METRELEPTIN
     Indication: LIPODYSTROPHY ACQUIRED
     Dosage: UNK
     Route: 058
  5. METFORMIN [Concomitant]
     Active Substance: METFORMIN HYDROCHLORIDE
     Dosage: UNK
     Dates: start: 20160720
  6. LANTUS [Concomitant]
     Active Substance: INSULIN GLARGINE
     Dosage: UNK
     Dates: start: 20160908
  7. ACTOS [Suspect]
     Active Substance: PIOGLITAZONE HYDROCHLORIDE
     Indication: DIABETES MELLITUS MANAGEMENT
     Dosage: 15 MG, QD
     Route: 065
     Dates: start: 20160820, end: 20161005
  8. ERGOCALCIFEROL. [Concomitant]
     Active Substance: ERGOCALCIFEROL
     Dosage: UNK UNK, 1/WEEK
     Dates: start: 20160722
  9. METRELEPTIN [Suspect]
     Active Substance: METRELEPTIN
     Dosage: 1.25 MG, QD
     Route: 058
     Dates: start: 20160901, end: 20160905

REACTIONS (1)
  - Autoimmune hepatitis [Unknown]

NARRATIVE: CASE EVENT DATE: 20161028
